FAERS Safety Report 8660474 (Version 6)
Quarter: 2014Q3

REPORT INFORMATION
  Report Type: Spontaneous
  Country: US (occurrence: US)
  Receive Date: 20120711
  Receipt Date: 20140711
  Transmission Date: 20150326
  Serious: Yes (Hospitalization, Other)
  Sender: FDA-Public Use
  Company Number: US-009507513-2012SP036872

PATIENT
  Sex: Female
  Weight: 68.27 kg

DRUGS (1)
  1. NUVARING [Suspect]
     Active Substance: ETHINYL ESTRADIOL\ETONOGESTREL
     Indication: CONTRACEPTION
     Dosage: UNK
     Dates: start: 200905, end: 20100707

REACTIONS (28)
  - Menorrhagia [Recovered/Resolved]
  - Pain in extremity [Unknown]
  - Tachycardia [Unknown]
  - Dyspnoea [Unknown]
  - Pulmonary embolism [Recovered/Resolved]
  - Chest pain [Unknown]
  - Anaemia [Not Recovered/Not Resolved]
  - Migraine with aura [Not Recovered/Not Resolved]
  - Dyspnoea [Unknown]
  - Biopsy bone [Unknown]
  - Contusion [Unknown]
  - Hallucination [Unknown]
  - Chest pain [Unknown]
  - Anticoagulation drug level below therapeutic [Unknown]
  - Pneumonia [Unknown]
  - Conjunctivitis [Unknown]
  - Ligament sprain [Unknown]
  - Orthostatic hypotension [Unknown]
  - Bronchial hyperreactivity [Unknown]
  - Conjunctivitis [Unknown]
  - Dyspnoea [Unknown]
  - Paraesthesia [Unknown]
  - Rhinitis allergic [Unknown]
  - Bronchitis [Unknown]
  - Vertigo [Not Recovered/Not Resolved]
  - Ligament sprain [Unknown]
  - Pleurisy [Unknown]
  - Chest pain [Unknown]

NARRATIVE: CASE EVENT DATE: 20090605
